FAERS Safety Report 5008967-8 (Version None)
Quarter: 2006Q2

REPORT INFORMATION
  Report Type: 
  Country: None (occurrence: None)
  Receive Date: 20060523
  Receipt Date: 20060518
  Transmission Date: 20061013
  Serious: Yes (Death, Hospitalization)
  Sender: FDA-Public Use
  Company Number: 2006PK01113

PATIENT
  Sex: Male

DRUGS (1)
  1. PROPOFOL [Suspect]

REACTIONS (6)
  - ATRIOVENTRICULAR BLOCK COMPLETE [None]
  - BLOOD CREATINE PHOSPHOKINASE INCREASED [None]
  - CIRCULATORY COLLAPSE [None]
  - DISEASE RECURRENCE [None]
  - LEFT VENTRICULAR FAILURE [None]
  - RHABDOMYOLYSIS [None]
